FAERS Safety Report 5040227-1 (Version None)
Quarter: 2006Q2

REPORT INFORMATION
  Report Type: 
  Country: None (occurrence: None)
  Receive Date: 20060630
  Receipt Date: 20060622
  Transmission Date: 20061013
  Serious: Yes (Hospitalization, Other)
  Sender: FDA-Public Use
  Company Number: ES-ABBOTT-06P-144-0336788-00

PATIENT
  Age: 41 Year
  Sex: Male

DRUGS (3)
  1. HUMIRA [Suspect]
     Indication: PSORIATIC ARTHROPATHY
     Dates: start: 20060301, end: 20060401
  2. HUMIRA [Suspect]
     Dates: start: 20060401, end: 20060601
  3. CLOXACILINA [Suspect]
     Indication: URINARY TRACT INFECTION
     Route: 048
     Dates: start: 20060601, end: 20060601

REACTIONS (4)
  - GLOMERULONEPHRITIS [None]
  - NO THERAPEUTIC RESPONSE [None]
  - RENAL FAILURE ACUTE [None]
  - URINARY TRACT INFECTION [None]
